FAERS Safety Report 6994545 (Version 2)
Quarter: 2013Q3

REPORT INFORMATION
  Report Type: Other
  Country: JP (occurrence: JP)
  Receive Date: 20090514
  Receipt Date: 20130913
  Transmission Date: 20140515
  Serious: Yes (Other)
  Sender: FDA-Public Use
  Company Number: JP-BRISTOL-MYERS SQUIBB COMPANY-14615280

PATIENT
  Age: 70 Year
  Sex: Male

DRUGS (3)
  1. CISPLATIN [Suspect]
     Indication: OSTEOSARCOMA
     Route: 013
  2. ETOPOSIDE [Suspect]
     Indication: OSTEOSARCOMA
     Route: 042
  3. IFOSFAMIDE [Suspect]
     Indication: OSTEOSARCOMA
     Dosage: 1 DF = 2 G/M2, GIVEN AS AN INFUSION FOR 5 DAYS AND REPEATED AFTER 1 MONTH

REACTIONS (3)
  - Posterior reversible encephalopathy syndrome [Recovered/Resolved]
  - Blood pressure increased [Recovered/Resolved]
  - Hypomagnesaemia [Recovered/Resolved]
